FAERS Safety Report 6119359-2 (Version None)
Quarter: 2009Q1

REPORT INFORMATION
  Report Type: 
  Country: None (occurrence: None)
  Receive Date: 20090316
  Receipt Date: 20090305
  Transmission Date: 20090719
  Serious: Yes (Hospitalization)
  Sender: FDA-Public Use
  Company Number: FR-AVENTIS-200910918FR

PATIENT
  Age: 82 Year
  Sex: Female

DRUGS (10)
  1. RIFATER [Suspect]
     Indication: TUBERCULOSIS
     Route: 048
     Dates: start: 20090101, end: 20090205
  2. MYAMBUTOL [Suspect]
     Indication: TUBERCULOSIS
     Route: 048
     Dates: start: 20090101, end: 20090205
  3. LEVOTHYROXINE SODIUM [Concomitant]
     Indication: HYPOTHYROIDISM
     Route: 048
  4. PROZAC [Concomitant]
     Route: 048
  5. TEMESTA                            /00273201/ [Concomitant]
     Route: 048
  6. ALDACTONE [Concomitant]
     Route: 048
  7. LASILIX FAIBLE [Concomitant]
     Route: 048
  8. SOTALEX [Concomitant]
     Route: 048
  9. CALCIUM WITH VITAMIN D             /01233101/ [Concomitant]
     Indication: DRUG USE FOR UNKNOWN INDICATION
     Route: 048
  10. PROTELOS [Concomitant]
     Indication: DRUG USE FOR UNKNOWN INDICATION
     Route: 048

REACTIONS (2)
  - C-REACTIVE PROTEIN INCREASED [None]
  - PYREXIA [None]
